FAERS Safety Report 25203290 (Version 1)
Quarter: 2025Q2

REPORT INFORMATION
  Report Type: Spontaneous
  Country: FR (occurrence: FR)
  Receive Date: 20250416
  Receipt Date: 20250416
  Transmission Date: 20250717
  Serious: Yes (Hospitalization)
  Sender: MERCK SHARP AND DOHME
  Company Number: None

PATIENT
  Age: 74 Year
  Sex: Female
  Weight: 67.5 kg

DRUGS (14)
  1. JANUMET [Suspect]
     Active Substance: METFORMIN HYDROCHLORIDE\SITAGLIPTIN PHOSPHATE
     Indication: Type 2 diabetes mellitus
     Dosage: STRENGTH: 50 MG/1000 MG
     Route: 048
     Dates: start: 202311
  2. EBASTINE [Concomitant]
     Active Substance: EBASTINE
     Indication: Pemphigoid
     Route: 048
  3. ZOPICLONE [Concomitant]
     Active Substance: ZOPICLONE
     Indication: Sleep disorder
     Route: 048
  4. GANFORT 300 micrograms/ml + 5 mg/ml, eye drops solution [Concomitant]
     Indication: Glaucoma
     Route: 047
  5. LANTUS 100 Units/ml, solution for injection in pre-filled pen [Concomitant]
     Indication: Pemphigoid
     Route: 058
  6. VENTOLINE 100 micrograms per dose, suspension for inhalation in pre... [Concomitant]
     Indication: Asthma
     Route: 055
  7. MIRTAZAPINE [Concomitant]
     Active Substance: MIRTAZAPINE
     Indication: Depression
     Route: 048
  8. DUPIXENT 300 mg, solution for injection in pre-filled pen [Concomitant]
     Indication: Pemphigoid
     Route: 058
     Dates: start: 20230906, end: 202406
  9. DUPIXENT 300 mg, solution for injection in pre-filled pen [Concomitant]
     Indication: Pemphigoid
     Route: 058
     Dates: start: 202408
  10. DUPIXENT 300 mg, solution for injection in pre-filled pen [Concomitant]
     Indication: Pemphigoid
     Route: 058
     Dates: start: 2021, end: 202304
  11. DUPIXENT 300 mg, solution for injection in pre-filled pen [Concomitant]
     Indication: Pemphigoid
     Route: 058
     Dates: start: 202406, end: 202408
  12. DUPIXENT 300 mg, solution for injection in pre-filled pen [Concomitant]
     Indication: Pemphigoid
     Route: 058
     Dates: start: 202304, end: 20230906
  13. LEVOTHYROXINE SODIUM [Concomitant]
     Active Substance: LEVOTHYROXINE SODIUM
     Indication: Hypothyroidism
     Route: 048
  14. TRELEGY ELLIPTA 92 micrograms/55 micrograms/22 micrograms, powder f... [Concomitant]
     Indication: Asthma
     Dosage: FORM: POWDER FOR INHALATION

REACTIONS (3)
  - Pemphigoid [Recovered/Resolved]
  - Cross sensitivity reaction [Recovering/Resolving]
  - Condition aggravated [Recovered/Resolved]

NARRATIVE: CASE EVENT DATE: 20240601
